FAERS Safety Report 19836471 (Version 2)
Quarter: 2021Q4

REPORT INFORMATION
  Report Type: Spontaneous
  Country: US (occurrence: US)
  Receive Date: 20210914
  Receipt Date: 20211214
  Transmission Date: 20220303
  Serious: No
  Sender: FDA-Public Use
  Company Number: US-SK LIFE SCIENCE, INC.-SKPVG-2021-000853

PATIENT

DRUGS (2)
  1. XCOPRI [Suspect]
     Active Substance: CENOBAMATE
     Indication: Focal dyscognitive seizures
     Dosage: 12.5 MILLIGRAM, QD FOR THREE DAYS
     Route: 065
     Dates: start: 20210719, end: 20210731
  2. DILANTIN                           /00017401/ [Concomitant]
     Indication: Product used for unknown indication
     Dosage: FOR 40 YEARS
     Route: 065

REACTIONS (4)
  - Myalgia [Recovered/Resolved]
  - Petechiae [Recovered/Resolved]
  - Neck pain [Recovered/Resolved]
  - Dyskinesia [Recovered/Resolved]

NARRATIVE: CASE EVENT DATE: 20210719
